FAERS Safety Report 7047688-7 (Version None)
Quarter: 2010Q4

REPORT INFORMATION
  Report Type: 
  Country: None (occurrence: None)
  Receive Date: 20101015
  Receipt Date: 20100730
  Transmission Date: 20110411
  Serious: Yes (Hospitalization)
  Sender: FDA-Public Use
  Company Number: PHFR2010GB04225

PATIENT
  Sex: Male

DRUGS (6)
  1. CARBAMAZEPINE [Suspect]
     Dosage: 400 MG, BID
  2. AMISULPRIDE [Suspect]
     Dosage: 600 MG, BID
  3. DEPAKOTE [Concomitant]
     Dosage: 500 MG MANE + 1250 MG NOCTE
  4. RISPERIDONE [Concomitant]
     Dosage: 50 MG/ 2 WEEK
  5. CLOPIXOL [Concomitant]
     Dosage: 500 MG/ 2 WEEKS
     Route: 030
  6. TRIHEXYPHENIDYL HCL [Concomitant]
     Dosage: 2 MG, BID

REACTIONS (11)
  - ABNORMAL BEHAVIOUR [None]
  - AGGRESSION [None]
  - APATHY [None]
  - BLOOD CHOLESTEROL INCREASED [None]
  - DECREASED INTEREST [None]
  - DELUSION [None]
  - HALLUCINATION, AUDITORY [None]
  - LETHARGY [None]
  - PHYSICAL ASSAULT [None]
  - SOMNOLENCE [None]
  - THINKING ABNORMAL [None]
